FAERS Safety Report 8767204 (Version 2)
Quarter: 2012Q4

REPORT INFORMATION
  Report Type: 
  Country: US (occurrence: US)
  Receive Date: 20120904
  Receipt Date: 20121022
  Transmission Date: 20130627
  Serious: Yes (Other)
  Sender: FDA-Public Use
  Company Number: US-JNJFOC-20100802292

PATIENT
  Age: 62 Year
  Sex: Male

DRUGS (2)
  1. LEVAQUIN [Suspect]
     Indication: AURICULAR PERICHONDRITIS
     Route: 048
  2. LEVAQUIN [Suspect]
     Indication: AURICULAR PERICHONDRITIS
     Route: 065

REACTIONS (3)
  - Rotator cuff syndrome [Unknown]
  - Tendon rupture [Unknown]
  - Adverse event [Unknown]
